FAERS Safety Report 5570698-3 (Version None)
Quarter: 2007Q4

REPORT INFORMATION
  Report Type: 
  Country: None (occurrence: None)
  Receive Date: 20071221
  Receipt Date: 20071205
  Transmission Date: 20080405
  Serious: Yes (Hospitalization, Other)
  Sender: FDA-Public Use
  Company Number: US-JNJFOC-20071201905

PATIENT
  Age: 36 Year
  Sex: Female
  Weight: 42.8 kg

DRUGS (7)
  1. INFLIXIMAB [Suspect]
     Dosage: PAST TWO YEARS
     Route: 042
  2. INFLIXIMAB [Suspect]
     Indication: CROHN'S DISEASE
     Route: 042
  3. CIPROFLOXACIN [Concomitant]
  4. MIRTAZAPINE [Concomitant]
  5. MECLIZINE [Concomitant]
  6. MESALAMINE [Concomitant]
  7. ACETAMINOPHINE [Concomitant]

REACTIONS (2)
  - IMMUNE RECONSTITUTION SYNDROME [None]
  - MYCOBACTERIUM AVIUM COMPLEX INFECTION [None]
